FAERS Safety Report 21038427 (Version 1)
Quarter: 2022Q3

REPORT INFORMATION
  Report Type: Spontaneous
  Country: ES (occurrence: ES)
  Receive Date: 20220704
  Receipt Date: 20220704
  Transmission Date: 20221026
  Serious: Yes (Death)
  Sender: FDA-Public Use
  Company Number: None

PATIENT
  Age: 83 Year
  Sex: Female
  Weight: 73 kg

DRUGS (9)
  1. METFORMIN [Suspect]
     Active Substance: METFORMIN HYDROCHLORIDE
     Indication: Diabetes mellitus
     Dosage: 1 TABLET EVERY 12 HOURS
     Route: 065
     Dates: start: 20150618, end: 20200706
  2. METFORMIN [Suspect]
     Active Substance: METFORMIN HYDROCHLORIDE
     Indication: Diabetes mellitus
     Dosage: 1 TABLET EVERY 12 HOURS
     Route: 065
     Dates: start: 20200706
  3. HIERRO (II) SULFATO (1742SU) [Concomitant]
     Indication: Iron deficiency anaemia
     Dosage: 1 TABLET EACH DAY
  4. SIMVASTATIN [Concomitant]
     Active Substance: SIMVASTATIN
     Indication: Hypercholesterolaemia
     Dosage: 1 TABLET EACH DAY
     Dates: start: 20140313
  5. VIDESIL [Concomitant]
     Indication: Vitamin D decreased
     Dosage: 1 AMPOULE EVERY 30 DAYS FOR 180 DAYS
     Route: 048
  6. LEXATIN [Concomitant]
     Indication: Anxiety
     Dosage: 1 CAPSULE EVERY 8 HOURS
  7. MOVICOL [Concomitant]
     Active Substance: POLYETHYLENE GLYCOL 3350\POTASSIUM CHLORIDE\SODIUM BICARBONATE\SODIUM CHLORIDE
     Indication: Constipation
     Dosage: 1 SACHET EVERY 8 HOURS FOR 30 DAYS
     Route: 048
     Dates: start: 20200802
  8. QUETIAPINE KERN PHARMA [Concomitant]
     Indication: Dementia Alzheimer^s type
     Dosage: 1 AND A HALF TABLET EACH DAY
     Dates: start: 20190604
  9. ENALAPRIL\HYDROCHLOROTHIAZIDE [Concomitant]
     Active Substance: ENALAPRIL\HYDROCHLOROTHIAZIDE
     Indication: Hypertension
     Dosage: 1 TABLET EACH DAY
     Dates: start: 20110526

REACTIONS (1)
  - Lactic acidosis [Fatal]

NARRATIVE: CASE EVENT DATE: 20200815
